FAERS Safety Report 12929534 (Version 1)
Quarter: 2016Q4

REPORT INFORMATION
  Report Type: Spontaneous
  Country: SG (occurrence: SG)
  Receive Date: 20161110
  Receipt Date: 20161110
  Transmission Date: 20170207
  Serious: Yes (Other)
  Sender: FDA-Public Use
  Company Number: SG-GLAXOSMITHKLINE-SG2016GSK164686

PATIENT
  Age: 55 Year
  Sex: Female

DRUGS (2)
  1. DICLOFENAC [Suspect]
     Active Substance: DICLOFENAC
     Indication: PRODUCT USED FOR UNKNOWN INDICATION
     Dosage: UNK
     Route: 065
  2. NAPROXEN. [Suspect]
     Active Substance: NAPROXEN
     Indication: PRODUCT USED FOR UNKNOWN INDICATION
     Dosage: UNK
     Route: 065

REACTIONS (4)
  - Swelling face [Unknown]
  - Rash [Unknown]
  - Eye swelling [Unknown]
  - Syncope [Unknown]

NARRATIVE: CASE EVENT DATE: 20160101
